FAERS Safety Report 10486413 (Version 2)
Quarter: 2014Q4

REPORT INFORMATION
  Report Type: Spontaneous
  Country: FR (occurrence: None)
  Receive Date: 20140929
  Receipt Date: 20141006
  Transmission Date: 20150528
  Serious: Yes (Hospitalization)
  Sender: FDA-Public Use
  Company Number: 2014256685

PATIENT
  Age: 75 Year
  Sex: Female

DRUGS (6)
  1. FRAGMINE (DALTEPARIN SODIUM) SOLUTION FOR INJECTION [Suspect]
     Active Substance: DALTEPARIN SODIUM
     Indication: THROMBOSIS PROPHYLAXIS
     Dosage: 1 DF
     Route: 058
     Dates: start: 20140603, end: 20140619
  2. GLUCOR (ACARBOSE) [Concomitant]
  3. SMECTA (ALUMINIUM MAGNESIUM SILICATE) [Concomitant]
  4. GLUCOPHAGE [Suspect]
     Active Substance: METFORMIN HYDROCHLORIDE
     Indication: TYPE 2 DIABETES MELLITUS
     Route: 048
     Dates: start: 20140603, end: 20140619
  5. PARACETAMOL (PARACETAMOL) [Concomitant]
     Active Substance: ACETAMINOPHEN
  6. UVEDOSE (COLECALCIFEROL) [Concomitant]

REACTIONS (11)
  - Muscle strain [None]
  - Osteoarthritis [None]
  - Cholestasis [None]
  - Blood glucose increased [None]
  - Blood alkaline phosphatase increased [None]
  - Cerebellar syndrome [None]
  - Gamma-glutamyltransferase increased [None]
  - Fall [None]
  - Compression fracture [None]
  - Disorientation [None]
  - Rhabdomyolysis [None]

NARRATIVE: CASE EVENT DATE: 20140604
